FAERS Safety Report 17426552 (Version 2)
Quarter: 2020Q1

REPORT INFORMATION
  Report Type: Report from Study
  Country: None (occurrence: AU)
  Receive Date: 20200218
  Receipt Date: 20200320
  Transmission Date: 20200409
  Serious: Yes (Hospitalization)
  Sender: FDA-Public Use
  Company Number: AU-ABBVIE-20K-008-3275096-00

PATIENT
  Sex: Male

DRUGS (6)
  1. DUODOPA [Suspect]
     Active Substance: CARBIDOPA\LEVODOPA
     Dosage: 1.5ML AT NIGHT
     Route: 050
  2. MADOPAR [Concomitant]
     Active Substance: BENSERAZIDE HYDROCHLORIDE\LEVODOPA
     Indication: PRODUCT USED FOR UNKNOWN INDICATION
  3. DUODOPA [Suspect]
     Active Substance: CARBIDOPA\LEVODOPA
     Dosage: 3.5ML CONTINUOUS DURING THE DAY
     Route: 050
  4. DUODOPA [Suspect]
     Active Substance: CARBIDOPA\LEVODOPA
     Dosage: MORNING DOSE REDUCED FROM 15ML TO 9.9ML.
     Route: 050
  5. DUODOPA [Suspect]
     Active Substance: CARBIDOPA\LEVODOPA
     Dosage: 3.7ML CONTINUOUS DOSE
     Route: 050
  6. DUODOPA [Suspect]
     Active Substance: CARBIDOPA\LEVODOPA
     Indication: PARKINSON^S DISEASE
     Dosage: 1.5 ML OVERNIGHT
     Route: 050
     Dates: start: 201605

REACTIONS (11)
  - Unevaluable event [Unknown]
  - Akinesia [Unknown]
  - Device issue [Unknown]
  - Unintentional medical device removal [Unknown]
  - Joint injury [Unknown]
  - Fall [Unknown]
  - Gait disturbance [Unknown]
  - Forearm fracture [Unknown]
  - Depressed mood [Unknown]
  - Overdose [Unknown]
  - Somnolence [Unknown]

NARRATIVE: CASE EVENT DATE: 2020
